FAERS Safety Report 25969570 (Version 1)
Quarter: 2025Q4

REPORT INFORMATION
  Report Type: Spontaneous
  Country: US (occurrence: US)
  Receive Date: 20251028
  Receipt Date: 20251028
  Transmission Date: 20260117
  Serious: Yes (Other)
  Sender: VERO BIOTECH
  Company Number: US-VEROBIOTECH-2025USVEROSPO00295

PATIENT
  Age: 36 Year

DRUGS (1)
  1. GENOSYL [Suspect]
     Active Substance: NITRIC OXIDE
     Indication: Product used for unknown indication
     Dosage: 60 PPM

REACTIONS (2)
  - Oxygen saturation decreased [Unknown]
  - Device malfunction [Unknown]
